FAERS Safety Report 12815085 (Version 1)
Quarter: 2016Q4

REPORT INFORMATION
  Report Type: Spontaneous
  Country: US (occurrence: US)
  Receive Date: 20161005
  Receipt Date: 20161005
  Transmission Date: 20170207
  Serious: No
  Sender: FDA-Public Use
  Company Number: US-AMGEN-USASP2015135078

PATIENT
  Age: 75 Year
  Sex: Female
  Weight: 45.35 kg

DRUGS (3)
  1. CALCIUM [Concomitant]
     Active Substance: CALCIUM
     Dosage: 1200 MG, QD
     Route: 065
  2. PROLIA [Suspect]
     Active Substance: DENOSUMAB
     Indication: OSTEOPOROSIS POSTMENOPAUSAL
     Dosage: UNK
     Route: 065
  3. VITAMIN D                          /00107901/ [Concomitant]
     Active Substance: ERGOCALCIFEROL
     Route: 065

REACTIONS (14)
  - Pancreatic enzymes increased [Unknown]
  - Back pain [Unknown]
  - Adverse drug reaction [Unknown]
  - Pruritus [Unknown]
  - Abdominal pain upper [Unknown]
  - Rash [Unknown]
  - Irritable bowel syndrome [Not Recovered/Not Resolved]
  - Skin exfoliation [Unknown]
  - Pain in extremity [Unknown]
  - Groin pain [Unknown]
  - Mobility decreased [Unknown]
  - Arthralgia [Unknown]
  - Urticaria [Unknown]
  - Bone disorder [Unknown]

NARRATIVE: CASE EVENT DATE: 201506
